FAERS Safety Report 9896274 (Version 1)
Quarter: 2014Q1

REPORT INFORMATION
  Report Type: Spontaneous
  Country: US (occurrence: US)
  Receive Date: 20140213
  Receipt Date: 20140213
  Transmission Date: 20141002
  Serious: No
  Sender: FDA-Public Use
  Company Number: US-BRISTOL-MYERS SQUIBB COMPANY-18816777

PATIENT
  Age: 53 Year
  Sex: Female
  Weight: 75.28 kg

DRUGS (17)
  1. ORENCIA [Suspect]
     Indication: RHEUMATOID ARTHRITIS
     Dosage: PFS
     Route: 048
     Dates: start: 201211
  2. ALBUTEROL [Concomitant]
     Dosage: AER 90MCG RF
  3. AMBIEN [Concomitant]
     Dosage: TABS
  4. ALLEGRA [Concomitant]
     Dosage: TABS
  5. AMITRIPTYLINE [Concomitant]
     Dosage: TABS
  6. CALCIUM [Concomitant]
  7. FLONASE [Concomitant]
     Dosage: SPR 0.05%
  8. FLOVENT [Concomitant]
     Dosage: AER
  9. FOLIC ACID [Concomitant]
     Dosage: TABS
  10. LEXAPRO [Concomitant]
     Dosage: TABS
  11. METHOTREXATE [Concomitant]
  12. MULTIVITE [Concomitant]
  13. NABUMETONE [Concomitant]
     Dosage: TABS
  14. PREDNISONE [Concomitant]
     Dosage: TABS
  15. PRILOSEC [Concomitant]
     Dosage: CAP
  16. VITAMIN B12 [Concomitant]
     Dosage: 1DF:1000CR
  17. VITAMIN D [Concomitant]
     Dosage: CAP?1DF:1000UNIT

REACTIONS (2)
  - Oral herpes [Unknown]
  - Aphthous stomatitis [Unknown]
